FAERS Safety Report 19951635 (Version 1)
Quarter: 2021Q4

REPORT INFORMATION
  Report Type: Spontaneous
  Country: FR (occurrence: FR)
  Receive Date: 20211014
  Receipt Date: 20211014
  Transmission Date: 20220303
  Serious: Yes (Hospitalization, Other)
  Sender: FDA-Public Use
  Company Number: FR-VALIDUS PHARMACEUTICALS LLC-FR-VDP-2021-003808

PATIENT

DRUGS (4)
  1. FUROSEMIDE [Suspect]
     Active Substance: FUROSEMIDE
     Indication: Hypertension
     Dosage: 250 MILLIGRAM
     Route: 048
  2. CANDESARTAN [Suspect]
     Active Substance: CANDESARTAN
     Indication: Hypertension
     Dosage: 4 MG, QD
     Route: 048
     Dates: end: 20210302
  3. SULFAMETHOXAZOLE\TRIMETHOPRIM [Suspect]
     Active Substance: SULFAMETHOXAZOLE\TRIMETHOPRIM
     Indication: Urinary tract infection
     Dosage: 1.6 G, QD
     Route: 048
     Dates: start: 20210228, end: 20210228
  4. IOMERON [Suspect]
     Active Substance: IOMEPROL
     Indication: Angioplasty
     Dosage: 1 DF, TOTAL
     Route: 041
     Dates: start: 202102, end: 202102

REACTIONS (1)
  - Acute kidney injury [Recovered/Resolved]
